FAERS Safety Report 8457044-2 (Version None)
Quarter: 2012Q2

REPORT INFORMATION
  Report Type: 
  Country: None (occurrence: None)
  Receive Date: 20120621
  Receipt Date: 20120612
  Transmission Date: 20120825
  Serious: Yes (Other)
  Sender: FDA-Public Use
  Company Number: CH-ASTRAZENECA-2012SE40106

PATIENT
  Age: 60 Year
  Sex: Female
  Weight: 88 kg

DRUGS (7)
  1. XARELTO [Suspect]
     Indication: THROMBOSIS PROPHYLAXIS
     Route: 048
     Dates: start: 20120320, end: 20120406
  2. ATACAND [Suspect]
     Route: 048
  3. METOPROLOL SUCCINATE [Suspect]
     Route: 048
  4. ACETAMINOPHEN [Suspect]
     Route: 048
  5. PANTOPRAZOLE [Suspect]
     Route: 048
  6. NOVALGIN [Concomitant]
     Route: 048
  7. TRAMADOL HYDROCHLORIDE [Suspect]
     Route: 048

REACTIONS (5)
  - VOMITING [None]
  - GASTROINTESTINAL DISORDER [None]
  - URINE ANALYSIS ABNORMAL [None]
  - NAUSEA [None]
  - JAUNDICE [None]
